FAERS Safety Report 9494114 (Version 2)
Quarter: 2013Q3

REPORT INFORMATION
  Report Type: Report from Study
  Country: TR (occurrence: TR)
  Receive Date: 20130903
  Receipt Date: 20130903
  Transmission Date: 20140515
  Serious: Yes (Hospitalization)
  Sender: FDA-Public Use
  Company Number: PHHO2010TR06381

PATIENT
  Age: 11 Year
  Sex: Male
  Weight: 26.3 kg

DRUGS (1)
  1. ACZ885 [Suspect]
     Indication: MUCKLE-WELLS SYNDROME
     Dosage: 2 MG/KG PER 2 MONTHS
     Route: 058
     Dates: start: 20090714

REACTIONS (5)
  - Pneumonia [Recovered/Resolved]
  - Oropharyngeal pain [Recovered/Resolved]
  - Pyrexia [Recovered/Resolved]
  - Lung consolidation [Recovered/Resolved]
  - C-reactive protein increased [Recovered/Resolved]
